FAERS Safety Report 11791988 (Version 1)
Quarter: 2015Q4

REPORT INFORMATION
  Report Type: Spontaneous
  Country: US (occurrence: US)
  Receive Date: 20151201
  Receipt Date: 20151201
  Transmission Date: 20160305
  Serious: No
  Sender: FDA-Public Use
  Company Number: US-PFIZER INC-2015401042

PATIENT
  Age: 7 Year
  Sex: Female
  Weight: 26 kg

DRUGS (1)
  1. GENOTROPIN [Suspect]
     Active Substance: SOMATROPIN
     Indication: HYPOPITUITARISM
     Dosage: 1 MG, 1X/DAY
     Route: 058
     Dates: start: 20151118

REACTIONS (1)
  - Scratch [Not Recovered/Not Resolved]

NARRATIVE: CASE EVENT DATE: 20151118
